FAERS Safety Report 9842909 (Version 1)
Quarter: 2014Q1

REPORT INFORMATION
  Report Type: Spontaneous
  Country: JP (occurrence: JP)
  Receive Date: 20140124
  Receipt Date: 20140124
  Transmission Date: 20141002
  Serious: Yes (Other)
  Sender: FDA-Public Use
  Company Number: PHHY2014JP004401

PATIENT
  Sex: 0
  Weight: 2.3 kg

DRUGS (5)
  1. CICLOSPORIN [Suspect]
     Dosage: 5 MG/KG, UNK
  2. CICLOSPORIN [Suspect]
     Dosage: 10 MG/KG, UNK
  3. CLOBET//CLOBETASOL PROPIONATE [Suspect]
  4. PREDNISOLONE [Suspect]
     Dosage: 45 MG, PER DAY
     Route: 048
  5. PREDNISOLONE [Suspect]
     Dosage: 20 UNK, PER DAY
     Route: 048

REACTIONS (3)
  - Low birth weight baby [Unknown]
  - Premature labour [Unknown]
  - Foetal exposure during pregnancy [Unknown]
